FAERS Safety Report 9995317 (Version 1)
Quarter: 2014Q1

REPORT INFORMATION
  Report Type: Spontaneous
  Country: SE (occurrence: SE)
  Receive Date: 20140311
  Receipt Date: 20140311
  Transmission Date: 20141002
  Serious: Yes (Hospitalization)
  Sender: FDA-Public Use
  Company Number: SE-ASTELLAS-2014EU002022

PATIENT
  Sex: Female

DRUGS (2)
  1. VESICARE [Suspect]
     Indication: HYPERTONIC BLADDER
     Dosage: 5 MG/DAY, UID/QD
     Route: 048
     Dates: start: 20110608, end: 2011
  2. VAGIFEM [Concomitant]
     Dosage: LOCAL APPLICATION
     Route: 050

REACTIONS (2)
  - Angle closure glaucoma [Unknown]
  - Blindness [Not Recovered/Not Resolved]
